FAERS Safety Report 8342010 (Version 2)
Quarter: 2012Q4

REPORT INFORMATION
  Report Type: 
  Country: US (occurrence: US)
  Receive Date: 20120118
  Receipt Date: 20121214
  Transmission Date: 20130627
  Serious: Yes (Hospitalization)
  Sender: FDA-Public Use
  Company Number: US-GLAXOSMITHKLINE-A0928789A

PATIENT
  Age: 61 Year
  Sex: Female

DRUGS (1)
  1. AVANDIA [Suspect]
     Indication: DIABETES MELLITUS
     Dosage: 4MG Per day
     Route: 048
     Dates: start: 200702, end: 200812

REACTIONS (5)
  - Weight increased [Not Recovered/Not Resolved]
  - Fall [Unknown]
  - Aphasia [Unknown]
  - Immobile [Unknown]
  - Disorientation [Unknown]
